FAERS Safety Report 7003314-4 (Version None)
Quarter: 2010Q3

REPORT INFORMATION
  Report Type: 
  Country: None (occurrence: None)
  Receive Date: 20100920
  Receipt Date: 20100608
  Transmission Date: 20110219
  Serious: No
  Sender: FDA-Public Use
  Company Number: A0863781A

PATIENT
  Age: 54 Year
  Sex: Male

DRUGS (9)
  1. LAMICTAL XR [Suspect]
     Dosage: 200MG PER DAY
     Route: 048
     Dates: start: 20090801
  2. FISH OIL [Concomitant]
  3. VERAPAMIL [Concomitant]
  4. TERAZOSIN HCL [Concomitant]
  5. BISOPROLOL FUMARATE AND HYDROCHLOROTHIAZIDE [Concomitant]
  6. ASPIRIN [Concomitant]
  7. ANTARA (MICRONIZED) [Concomitant]
  8. PROZAC [Concomitant]
  9. SIMVASTATIN [Concomitant]

REACTIONS (3)
  - COORDINATION ABNORMAL [None]
  - SOMNOLENCE [None]
  - SPEECH DISORDER [None]
